FAERS Safety Report 5506132-9 (Version None)
Quarter: 2007Q4

REPORT INFORMATION
  Report Type: 
  Country: None (occurrence: None)
  Receive Date: 20071101
  Receipt Date: 20071023
  Transmission Date: 20080405
  Serious: Yes (Hospitalization)
  Sender: FDA-Public Use
  Company Number: E3810-01348-SPO-US

PATIENT
  Age: 80 Year
  Sex: Female

DRUGS (5)
  1. ACIPHEX [Suspect]
     Indication: DUODENAL ULCER
     Dosage: ORAL
     Route: 048
  2. ACIPHEX [Suspect]
     Indication: GASTRIC ULCER
     Dosage: ORAL
     Route: 048
  3. LIPITOR [Concomitant]
  4. COUMADIN [Concomitant]
  5. METOPROLOL TARTRATE [Concomitant]

REACTIONS (10)
  - ABDOMINAL TENDERNESS [None]
  - ARTERIAL OCCLUSIVE DISEASE [None]
  - BLOOD GASTRIN INCREASED [None]
  - CONSTIPATION [None]
  - DIARRHOEA [None]
  - DIVERTICULUM [None]
  - DUODENAL ULCER [None]
  - GASTRIC ULCER [None]
  - INTESTINAL ISCHAEMIA [None]
  - PEPTIC ULCER [None]
